FAERS Safety Report 9880754 (Version 1)
Quarter: 2014Q1

REPORT INFORMATION
  Report Type: Spontaneous
  Country: US (occurrence: None)
  Receive Date: 20140206
  Receipt Date: 20140206
  Transmission Date: 20141002
  Serious: Yes (Other)
  Sender: FDA-Public Use
  Company Number: None

PATIENT
  Age: 67 Year
  Sex: Male

DRUGS (2)
  1. SUTENT [Suspect]
     Indication: PANCREATIC CARCINOMA METASTATIC
     Dosage: 3 X 12.5 MG
     Route: 048
     Dates: start: 20130618, end: 20140107
  2. SUTENT [Suspect]
     Indication: METASTASES TO LIVER
     Dosage: 3 X 12.5 MG
     Route: 048
     Dates: start: 20130618, end: 20140107

REACTIONS (1)
  - Drug ineffective [None]
